FAERS Safety Report 6061871-9 (Version None)
Quarter: 2009Q1

REPORT INFORMATION
  Report Type: 
  Country: None (occurrence: None)
  Receive Date: 20090202
  Receipt Date: 20090120
  Transmission Date: 20090719
  Serious: Yes (Hospitalization)
  Sender: FDA-Public Use
  Company Number: PHHY2009GB02215

PATIENT
  Sex: Male

DRUGS (5)
  1. CLOZARIL [Suspect]
     Indication: SCHIZOPHRENIA
     Dosage: 8.4 GM
     Dates: start: 20030714
  2. CLOZARIL [Suspect]
     Dosage: 8.4 GM
     Dates: start: 20090113
  3. VALPROATE SODIUM [Suspect]
  4. DIAZEPAM [Suspect]
  5. CITALOPRAM HYDROBROMIDE [Suspect]

REACTIONS (2)
  - CONFUSIONAL STATE [None]
  - OVERDOSE [None]
